FAERS Safety Report 9240143 (Version 1)
Quarter: 2013Q2

REPORT INFORMATION
  Report Type: Spontaneous
  Country: US (occurrence: None)
  Receive Date: 20130418
  Receipt Date: 20130418
  Transmission Date: 20140414
  Serious: Yes (Life-Threatening, Hospitalization, Other)
  Sender: FDA-Public Use
  Company Number: None

PATIENT
  Age: 56 Year
  Sex: Male
  Weight: 99.79 kg

DRUGS (2)
  1. LITHIUM [Suspect]
     Dates: start: 20110929, end: 20130109
  2. BENZTROPINE MESYLATE [Suspect]

REACTIONS (4)
  - Balance disorder [None]
  - Sedation [None]
  - Somnolence [None]
  - Crime [None]
